FAERS Safety Report 5110672-4 (Version None)
Quarter: 2006Q3

REPORT INFORMATION
  Report Type: 
  Country: None (occurrence: None)
  Receive Date: 20060921
  Receipt Date: 20051014
  Transmission Date: 20061208
  Serious: Yes (Hospitalization)
  Sender: FDA-Public Use
  Company Number: FR-MERCK-0510FRA00041

PATIENT
  Age: 70 Year
  Sex: Female

DRUGS (5)
  1. FOSAMAX [Suspect]
     Indication: OSTEOPOROSIS
     Route: 048
     Dates: start: 20041101, end: 20050524
  2. ASPIRIN LYSINE [Concomitant]
     Route: 048
  3. DIGOXIN [Concomitant]
     Route: 048
  4. TRIMETAZIDINE HYDROCHLORIDE [Concomitant]
     Route: 048
  5. FUROSEMIDE AND SPIRONOLACTONE [Concomitant]
     Route: 048

REACTIONS (3)
  - GRANULOMATOUS LIVER DISEASE [None]
  - HEPATITIS A ANTIBODY POSITIVE [None]
  - WEIGHT DECREASED [None]
